FAERS Safety Report 15725552 (Version 1)
Quarter: 2018Q4

REPORT INFORMATION
  Report Type: Spontaneous
  Country: CZ (occurrence: CZ)
  Receive Date: 20181215
  Receipt Date: 20181215
  Transmission Date: 20190205
  Serious: Yes (Death, Other)
  Sender: FDA-Public Use
  Company Number: CZ-ACCORD-096285

PATIENT
  Age: 70 Year
  Sex: Female

DRUGS (8)
  1. BISOPROLOL/BISOPROLOL FUMARATE/BISOPROLOL HEMIFUMARATE [Concomitant]
  2. CARBOPLATIN ACCORD [Suspect]
     Active Substance: CARBOPLATIN
     Indication: LUNG NEOPLASM MALIGNANT
     Dosage: 10 MG / ML CONCENTRATE FOR SOLUTION FOR INFUSION
  3. ANOPYRIN [Concomitant]
     Active Substance: ASPIRIN
  4. VEPESID [Concomitant]
     Active Substance: ETOPOSIDE
  5. PREDUCTAL [Concomitant]
     Active Substance: TRIMETAZIDINE DIHYDROCHLORIDE
  6. TRITACE [Concomitant]
     Active Substance: RAMIPRIL
  7. SORTIS [Concomitant]
     Active Substance: ATORVASTATIN
  8. HELICID [Concomitant]
     Active Substance: OMEPRAZOLE

REACTIONS (2)
  - Pancytopenia [Fatal]
  - Acute kidney injury [Fatal]

NARRATIVE: CASE EVENT DATE: 20180112
